FAERS Safety Report 9788919 (Version 1)
Quarter: 2013Q4

REPORT INFORMATION
  Report Type: Spontaneous
  Country: US (occurrence: US)
  Receive Date: 20131230
  Receipt Date: 20131230
  Transmission Date: 20140711
  Serious: No
  Sender: FDA-Public Use
  Company Number: US-PFIZER INC-2013371820

PATIENT
  Sex: Female

DRUGS (2)
  1. CHANTIX [Suspect]
     Indication: SMOKING CESSATION THERAPY
     Dosage: 0.5 MG, 1X/DAY
     Dates: start: 20131219, end: 201312
  2. CHANTIX [Suspect]
     Dosage: UNK
     Dates: start: 201312

REACTIONS (4)
  - Ecchymosis [Not Recovered/Not Resolved]
  - Anxiety [Unknown]
  - Chest discomfort [Unknown]
  - Aggression [Unknown]
